FAERS Safety Report 8689349 (Version 2)
Quarter: 2014Q1

REPORT INFORMATION
  Report Type: Spontaneous
  Country: US (occurrence: US)
  Receive Date: 20120727
  Receipt Date: 20140205
  Transmission Date: 20141002
  Serious: No
  Sender: FDA-Public Use
  Company Number: US-ASTRAZENECA-2012SE00764

PATIENT
  Age: 45 Year
  Sex: Female
  Weight: 113.4 kg

DRUGS (14)
  1. SEROQUEL [Suspect]
     Indication: BIPOLAR DISORDER
     Route: 048
     Dates: start: 2004, end: 2012
  2. SEROQUEL [Suspect]
     Indication: SINUS TACHYCARDIA
     Route: 048
     Dates: start: 2004, end: 2012
  3. SEROQUEL [Suspect]
     Indication: BIPOLAR DISORDER
     Route: 048
     Dates: start: 2012, end: 201311
  4. SEROQUEL [Suspect]
     Indication: SINUS TACHYCARDIA
     Route: 048
     Dates: start: 2012, end: 201311
  5. SEROQUEL [Suspect]
     Indication: BIPOLAR DISORDER
     Route: 048
     Dates: start: 201311
  6. SEROQUEL [Suspect]
     Indication: SINUS TACHYCARDIA
     Route: 048
     Dates: start: 201311
  7. CLONAZEPAM [Concomitant]
     Indication: TACHYCARDIA
     Route: 048
  8. BUSPAR [Concomitant]
     Indication: TACHYCARDIA
     Route: 048
  9. METOPROLOL TARTRATE [Concomitant]
     Indication: BLOOD PRESSURE
     Route: 048
  10. METOPROLOL TARTRATE [Concomitant]
     Indication: HEART RATE
     Route: 048
  11. ZANTAC [Concomitant]
     Indication: GASTROOESOPHAGEAL REFLUX DISEASE
     Route: 048
  12. IBUPROFEN [Concomitant]
     Indication: DYSMENORRHOEA
     Route: 048
  13. ROBAXIN GENERIC [Concomitant]
     Indication: DYSMENORRHOEA
     Route: 048
  14. MICROGESTIN [Concomitant]
     Indication: CONTRACEPTION
     Dosage: UNK DAILY
     Route: 048

REACTIONS (6)
  - Insomnia [Recovering/Resolving]
  - Agitation [Recovered/Resolved]
  - Weight increased [Recovering/Resolving]
  - Dysarthria [Unknown]
  - Somnolence [Unknown]
  - Drug dose omission [Unknown]
